FAERS Safety Report 7825828-7 (Version None)
Quarter: 2011Q4

REPORT INFORMATION
  Report Type: 
  Country: None (occurrence: None)
  Receive Date: 20111019
  Receipt Date: 20111006
  Transmission Date: 20120403
  Serious: Yes (Other)
  Sender: FDA-Public Use
  Company Number: GB-ROCHE-800541

PATIENT
  Age: 12 Year
  Sex: Female

DRUGS (8)
  1. RITUXIMAB [Suspect]
     Indication: PRODUCT USED FOR UNKNOWN INDICATION
     Route: 065
  2. CAMPATH [Suspect]
     Indication: PRODUCT USED FOR UNKNOWN INDICATION
     Route: 065
  3. PREDNISOLONE [Suspect]
     Indication: WEGENER'S GRANULOMATOSIS
     Route: 048
  4. INFLIXIMAB [Suspect]
     Indication: PRODUCT USED FOR UNKNOWN INDICATION
     Route: 065
  5. METHYLPREDNISOLONE [Suspect]
     Indication: WEGENER'S GRANULOMATOSIS
     Route: 042
  6. CYCLOSPORINE [Suspect]
     Indication: IMMUNOSUPPRESSION
     Route: 065
  7. CYCLOPHOSPHAMIDE [Suspect]
     Route: 042
  8. CYCLOPHOSPHAMIDE [Suspect]
     Indication: WEGENER'S GRANULOMATOSIS
     Route: 048

REACTIONS (7)
  - BRONCHIECTASIS [None]
  - BRONCHOSTENOSIS [None]
  - NASAL SEPTUM DISORDER [None]
  - PNEUMOTHORAX [None]
  - LOWER RESPIRATORY TRACT INFECTION [None]
  - HEARING IMPAIRED [None]
  - OESOPHAGEAL CANDIDIASIS [None]
